FAERS Safety Report 12717494 (Version 1)
Quarter: 2016Q3

REPORT INFORMATION
  Report Type: Spontaneous
  Country: US (occurrence: US)
  Receive Date: 20160906
  Receipt Date: 20160906
  Transmission Date: 20161109
  Serious: No
  Sender: FDA-Public Use
  Company Number: US-AMNEAL PHARMACEUTICALS-2015AMN00144

PATIENT
  Age: 67 Year
  Sex: Female
  Weight: 90.7 kg

DRUGS (5)
  1. GABAPENTIN. [Suspect]
     Active Substance: GABAPENTIN
     Indication: HEAD INJURY
     Dosage: 2 CAPSULES, 2X/DAY
     Dates: start: 2014
  2. LOTRONEX [Concomitant]
     Active Substance: ALOSETRON HYDROCHLORIDE
  3. LUNESTA [Concomitant]
     Active Substance: ESZOPICLONE
  4. GABAPENTIN. [Suspect]
     Active Substance: GABAPENTIN
     Indication: HEADACHE
  5. PREMARIN [Concomitant]
     Active Substance: ESTROGENS, CONJUGATED

REACTIONS (4)
  - Muscle contractions involuntary [Recovered/Resolved]
  - Antinuclear antibody positive [Recovered/Resolved]
  - Headache [Recovered/Resolved]
  - Weight increased [Recovered/Resolved]

NARRATIVE: CASE EVENT DATE: 201507
